FAERS Safety Report 25401980 (Version 1)
Quarter: 2025Q2

REPORT INFORMATION
  Report Type: Spontaneous
  Country: US (occurrence: None)
  Receive Date: 20250605
  Receipt Date: 20250605
  Transmission Date: 20250716
  Serious: Yes (Other)
  Sender: FDA-CTU
  Company Number: None

PATIENT
  Age: 56 Year
  Sex: Male
  Weight: 75.2 kg

DRUGS (9)
  1. DIVALPROEX SODIUM [Suspect]
     Active Substance: DIVALPROEX SODIUM
     Indication: Affective disorder
     Dosage: FREQUENCY : TWICE A DAY;?
     Route: 048
  2. LITHIUM [Suspect]
     Active Substance: LITHIUM
     Indication: Affective disorder
     Dosage: FREQUENCY : TWICE A DAY;?
     Route: 048
  3. ATORVASTATIN [Concomitant]
     Active Substance: ATORVASTATIN
  4. CHOLECALCIFEROL [Concomitant]
     Active Substance: CHOLECALCIFEROL
  5. DOCUSATE [Concomitant]
     Active Substance: DOCUSATE
  6. LISINOPRIL [Concomitant]
     Active Substance: LISINOPRIL
  7. LORAZEPAM [Concomitant]
     Active Substance: LORAZEPAM
  8. METFORMIN [Concomitant]
     Active Substance: METFORMIN HYDROCHLORIDE
  9. OLANZAPINE [Concomitant]
     Active Substance: OLANZAPINE

REACTIONS (5)
  - Drooling [None]
  - Dysphagia [None]
  - Antipsychotic drug level above therapeutic [None]
  - Drug level above therapeutic [None]
  - Ammonia increased [None]

NARRATIVE: CASE EVENT DATE: 20250412
